FAERS Safety Report 25703512 (Version 1)
Quarter: 2025Q3

REPORT INFORMATION
  Report Type: Spontaneous
  Country: GB (occurrence: GB)
  Receive Date: 20250820
  Receipt Date: 20250820
  Transmission Date: 20251021
  Serious: Yes (Hospitalization, Other)
  Sender: TEVA
  Company Number: None

PATIENT
  Age: 85 Year
  Sex: Male
  Weight: 54 kg

DRUGS (1)
  1. INDAPAMIDE [Suspect]
     Active Substance: INDAPAMIDE
     Indication: Product used for unknown indication
     Dosage: NOT AVAILABLE
     Route: 065
     Dates: start: 2025, end: 20250802

REACTIONS (1)
  - Dyspraxia [Recovering/Resolving]

NARRATIVE: CASE EVENT DATE: 20250808
